FAERS Safety Report 8475886 (Version 4)
Quarter: 2012Q4

REPORT INFORMATION
  Report Type: Spontaneous
  Country: US (occurrence: None)
  Receive Date: 20120316
  Receipt Date: 20120926
  Transmission Date: 20130627
  Serious: Yes (Other)
  Sender: FDA-Public Use
  Company Number: ACO_28565_2011

PATIENT
  Age: 49 Year
  Sex: Female
  Weight: 56.7 kg

DRUGS (10)
  1. AMPYRA [Suspect]
     Indication: GAIT DISTURBANCE
     Dosage: Q 12 HRS
     Route: 048
     Dates: start: 20111215, end: 20120102
  2. AMPYRA [Suspect]
     Indication: ASTHENIA
     Dosage: Q 12 HRS
     Route: 048
     Dates: start: 20111215, end: 20120102
  3. TYSABRI [Concomitant]
  4. PREDNISONE [Concomitant]
  5. RESTORIL /00054301/ (CHLORMEZANONE) [Concomitant]
  6. BETHANECHOL CLORIDE (BETHANECHOL CHLORIDE) [Concomitant]
  7. VALTREX [Concomitant]
  8. LAMICTAL [Concomitant]
  9. PROVIGIL [Concomitant]
  10. CYMBALTA [Concomitant]

REACTIONS (2)
  - Nausea [None]
  - Progressive multifocal leukoencephalopathy [None]
